FAERS Safety Report 10262873 (Version 2)
Quarter: 2014Q2

REPORT INFORMATION
  Report Type: Report from Study
  Country: US (occurrence: US)
  Receive Date: 20140626
  Receipt Date: 20140626
  Transmission Date: 20141212
  Serious: Yes (Death)
  Sender: FDA-Public Use
  Company Number: US-MYLANLABS-2013S1020731

PATIENT
  Age: 39 Year
  Sex: Male
  Weight: 129.28 kg

DRUGS (7)
  1. CLOZAPINE TABLETS [Suspect]
     Route: 048
     Dates: end: 201309
  2. AMLODIPINE [Concomitant]
  3. AZITHROMYCIN [Concomitant]
  4. HYDROCHLOROTHIAZIDE [Concomitant]
  5. LAMICTAL [Concomitant]
  6. METOPROLOL [Concomitant]
  7. OMEPRAZOLE [Concomitant]

REACTIONS (1)
  - Lung abscess [Fatal]
